FAERS Safety Report 5646141-2 (Version None)
Quarter: 2008Q1

REPORT INFORMATION
  Report Type: 
  Country: None (occurrence: None)
  Receive Date: 20080229
  Receipt Date: 20080222
  Transmission Date: 20080703
  Serious: Yes (Other)
  Sender: FDA-Public Use
  Company Number: JP-PFIZER INC-2008017134

PATIENT
  Age: 22 Year
  Sex: Female

DRUGS (11)
  1. VIAGRA [Suspect]
     Indication: PULMONARY HYPERTENSION
     Dosage: DAILY DOSE:40MG
     Dates: start: 20080212, end: 20080216
  2. FLOLAN [Concomitant]
     Route: 042
  3. TRACLEER [Concomitant]
     Route: 048
  4. WARFARIN SODIUM [Concomitant]
     Route: 048
  5. FAMOTIDINE [Concomitant]
     Route: 048
  6. IPD [Concomitant]
     Route: 048
  7. LASIX [Concomitant]
  8. ALDACTONE [Concomitant]
     Route: 048
  9. TRICHLORMETHIAZIDE [Concomitant]
     Route: 048
  10. SLOW-K [Concomitant]
     Route: 048
  11. ALLELOCK [Concomitant]
     Route: 048

REACTIONS (1)
  - EOSINOPHILIC PNEUMONIA [None]
